FAERS Safety Report 9642822 (Version 1)
Quarter: 2013Q4

REPORT INFORMATION
  Report Type: Spontaneous
  Country: US (occurrence: US)
  Receive Date: 20131024
  Receipt Date: 20131024
  Transmission Date: 20140711
  Serious: No
  Sender: FDA-Public Use
  Company Number: US-009507513-1310USA010906

PATIENT
  Age: 40 Year
  Sex: Female

DRUGS (8)
  1. SAPHRIS [Suspect]
     Indication: BIPOLAR I DISORDER
     Dosage: 10 MG, QD, RAPIDLY DISSOLVE 10
     Route: 060
     Dates: start: 201211
  2. SAPHRIS [Suspect]
     Dosage: 10 MG, QD, , RAPIDLY DISSOLVE 10
     Route: 060
  3. KLONOPIN [Concomitant]
  4. PRISTIQ [Concomitant]
  5. LAMICTAL [Concomitant]
  6. AMBIEN [Concomitant]
  7. CONCERTA [Concomitant]
  8. TOPAMAX [Concomitant]

REACTIONS (2)
  - Weight increased [Unknown]
  - Weight increased [Unknown]
